FAERS Safety Report 11459122 (Version 1)
Quarter: 2015Q3

REPORT INFORMATION
  Report Type: Spontaneous
  Country: IT (occurrence: IT)
  Receive Date: 20150904
  Receipt Date: 20150904
  Transmission Date: 20151125
  Serious: Yes (Other)
  Sender: FDA-Public Use
  Company Number: IT-TEVA-590613ACC

PATIENT
  Age: 73 Year
  Sex: Female

DRUGS (11)
  1. RISPERDAL [Concomitant]
     Active Substance: RISPERIDONE
     Indication: PRODUCT USED FOR UNKNOWN INDICATION
     Route: 048
  2. SOLOSA - 3 MG COMPRESSE - LABORATORI GUIDOTTI S.P.A. [Suspect]
     Active Substance: GLIMEPIRIDE
     Indication: DIABETES MELLITUS
     Dosage: 3 MILLIGRAM DAILY; 3 MG DAILY
     Route: 048
     Dates: start: 20120223, end: 20130313
  3. LEXOTAN - ROCHE S.P.A. [Concomitant]
     Active Substance: BROMAZEPAM
     Indication: PRODUCT USED FOR UNKNOWN INDICATION
     Route: 048
  4. LASIX [Concomitant]
     Active Substance: FUROSEMIDE
     Indication: PRODUCT USED FOR UNKNOWN INDICATION
     Route: 048
  5. METFORMINA TEVA - 56 COMPRESSE RIVESTITE - TEVA ITALIA S.R.L. [Suspect]
     Active Substance: METFORMIN HYDROCHLORIDE
     Indication: DIABETES MELLITUS
     Dosage: 1500 MILLIGRAM DAILY; 1500 MG DAILY
     Route: 048
     Dates: start: 20120223
  6. LANTUS [Suspect]
     Active Substance: INSULIN GLARGINE
     Indication: DIABETES MELLITUS
     Dosage: DAILY
     Route: 058
     Dates: start: 20130103, end: 20130313
  7. CARDIOASPIRIN - 100 MG COMPRESSE GASTRORESISTENTI - BAYER S.P.A. [Concomitant]
     Active Substance: ASPIRIN
     Indication: PRODUCT USED FOR UNKNOWN INDICATION
     Dosage: 100 MG
     Route: 048
  8. TRIATEC HCT - 5MG + 25 MG COMPRESSE - SANOFI S.P.A. [Concomitant]
     Indication: PRODUCT USED FOR UNKNOWN INDICATION
     Dosage: 1 DF
     Route: 048
  9. TOTALIP - COMPRESSE 10 MG - LABORATORI GUIDOTTI S.P.A. [Concomitant]
     Indication: PRODUCT USED FOR UNKNOWN INDICATION
     Dosage: 10 MG
     Route: 048
  10. DONEPEZIL RANBAXY - 10 MG COMPRESSE RIVESTITE CON FILM - RANBAXY ITALI [Concomitant]
     Indication: PRODUCT USED FOR UNKNOWN INDICATION
     Dosage: 10 MG
     Route: 048
  11. SINEMET - 200 MG + 50 MG COMPRESSE A RILASCIO MODIFICATO - MSD ITALIA [Concomitant]
     Indication: PRODUCT USED FOR UNKNOWN INDICATION
     Route: 048

REACTIONS (4)
  - Confusional state [Recovered/Resolved]
  - Hypoglycaemia [Recovered/Resolved]
  - Gait disturbance [Recovered/Resolved]
  - Aphasia [Recovered/Resolved]

NARRATIVE: CASE EVENT DATE: 20130313
